FAERS Safety Report 8895325 (Version 1)
Quarter: 2012Q4

REPORT INFORMATION
  Report Type: 
  Country: FR (occurrence: FR)
  Receive Date: 20121108
  Receipt Date: 20121108
  Transmission Date: 20130627
  Serious: Yes (Other)
  Sender: FDA-Public Use
  Company Number: FR-BAYER-2012-098071

PATIENT
  Sex: Female
  Weight: 50 kg

DRUGS (1)
  1. BETAFERON [Suspect]
     Dosage: UNK
     Dates: start: 20120123

REACTIONS (9)
  - Thyroiditis [None]
  - Hyperthyroidism [None]
  - Odynophagia [None]
  - Palpitations [None]
  - Hot flush [None]
  - Tremor [None]
  - Alopecia [None]
  - Exophthalmos [None]
  - Eye pain [None]
